FAERS Safety Report 18197947 (Version 1)
Quarter: 2020Q3

REPORT INFORMATION
  Report Type: Spontaneous
  Country: CA (occurrence: CA)
  Receive Date: 20200826
  Receipt Date: 20200826
  Transmission Date: 20201103
  Serious: Yes (Disabling)
  Sender: FDA-Public Use
  Company Number: CA-MYLANLABS-2020M1073265

PATIENT
  Age: 76 Year
  Sex: Female
  Weight: 69.85 kg

DRUGS (1)
  1. MYLAN?BUPROPION XL [Suspect]
     Active Substance: BUPROPION
     Indication: DEPRESSION
     Dosage: 300 MILLIGRAM, QD

REACTIONS (3)
  - Balance disorder [Unknown]
  - Headache [Unknown]
  - Nausea [Unknown]
